FAERS Safety Report 11825351 (Version 1)
Quarter: 2015Q4

REPORT INFORMATION
  Report Type: Report from Study
  Country: CA (occurrence: CA)
  Receive Date: 20151211
  Receipt Date: 20151211
  Transmission Date: 20160305
  Serious: Yes (Other)
  Sender: FDA-Public Use
  Company Number: CA-ALEXION PHARMACEUTICALS INC-A201504954

PATIENT
  Sex: Male
  Weight: 86 kg

DRUGS (7)
  1. ADALAT [Concomitant]
     Active Substance: NIFEDIPINE
     Indication: HYPOTENSION
     Dosage: UNK
     Route: 065
     Dates: end: 201511
  2. IRBESARTAN. [Concomitant]
     Active Substance: IRBESARTAN
     Indication: HYPOTENSION
     Dosage: UNK
     Route: 065
     Dates: end: 201511
  3. ADALAT [Concomitant]
     Active Substance: NIFEDIPINE
     Indication: DIZZINESS
  4. IRBESARTAN. [Concomitant]
     Active Substance: IRBESARTAN
     Indication: DIZZINESS
  5. ADALAT [Concomitant]
     Active Substance: NIFEDIPINE
     Indication: ASTHENIA
  6. SOLIRIS [Suspect]
     Active Substance: ECULIZUMAB
     Indication: HAEMOLYTIC URAEMIC SYNDROME
     Dosage: 900 MG, QW
     Route: 042
     Dates: start: 20151111
  7. IRBESARTAN. [Concomitant]
     Active Substance: IRBESARTAN
     Indication: ASTHENIA

REACTIONS (2)
  - Anuria [Not Recovered/Not Resolved]
  - Dysgeusia [Not Recovered/Not Resolved]
